FAERS Safety Report 9672032 (Version 2)
Quarter: 2013Q4

REPORT INFORMATION
  Report Type: Spontaneous
  Country: FR (occurrence: FR)
  Receive Date: 20131106
  Receipt Date: 20131202
  Transmission Date: 20140711
  Serious: Yes (Hospitalization)
  Sender: FDA-Public Use
  Company Number: FR-GLAXOSMITHKLINE-B0936527A

PATIENT
  Sex: Female

DRUGS (23)
  1. NARAMIG [Suspect]
     Indication: MIGRAINE
     Route: 048
  2. MEDIATOR [Suspect]
     Indication: APPETITE DISORDER
     Route: 048
     Dates: start: 2006, end: 2009
  3. ISOMERIDE [Suspect]
     Indication: APPETITE DISORDER
     Route: 048
     Dates: start: 1990
  4. AMFEPRAMONE [Suspect]
     Indication: APPETITE DISORDER
     Route: 048
  5. TENUATE DOSPAN [Suspect]
     Indication: APPETITE DISORDER
     Route: 048
  6. SEGLOR [Suspect]
     Indication: MIGRAINE
     Route: 065
  7. ZOMIG [Suspect]
     Indication: MIGRAINE
     Route: 065
  8. MAXALT [Suspect]
     Indication: MIGRAINE
     Route: 065
  9. ATURGYL [Concomitant]
     Indication: PRODUCT USED FOR UNKNOWN INDICATION
     Route: 065
  10. RHINOFLUIMUCIL [Concomitant]
     Indication: PRODUCT USED FOR UNKNOWN INDICATION
     Route: 065
  11. ACTIFED (FRANCE) [Concomitant]
     Indication: PRODUCT USED FOR UNKNOWN INDICATION
     Route: 065
  12. CONTRACEPTIVE PILL [Concomitant]
     Indication: CONTRACEPTION
     Route: 048
     Dates: start: 1981
  13. LEXOMIL [Concomitant]
     Indication: PRODUCT USED FOR UNKNOWN INDICATION
     Route: 065
  14. XANAX [Concomitant]
     Indication: PRODUCT USED FOR UNKNOWN INDICATION
     Route: 065
     Dates: end: 201211
  15. CYMBALTA [Concomitant]
     Indication: PRODUCT USED FOR UNKNOWN INDICATION
     Route: 065
     Dates: end: 201211
  16. NEBIVOLOL [Concomitant]
     Indication: PRODUCT USED FOR UNKNOWN INDICATION
     Route: 065
     Dates: end: 201206
  17. PROCORALAN [Concomitant]
     Indication: PRODUCT USED FOR UNKNOWN INDICATION
     Route: 065
  18. APROVEL [Concomitant]
     Indication: PRODUCT USED FOR UNKNOWN INDICATION
     Route: 065
  19. LASILIX [Concomitant]
     Indication: PRODUCT USED FOR UNKNOWN INDICATION
     Route: 065
  20. ZANIDIP [Concomitant]
     Indication: PRODUCT USED FOR UNKNOWN INDICATION
     Route: 065
  21. CRESTOR [Concomitant]
     Indication: PRODUCT USED FOR UNKNOWN INDICATION
     Route: 065
     Dates: start: 2008
  22. HAEMOPHILUS INFLUENZAE VACCINE [Concomitant]
     Indication: PROPHYLAXIS
     Route: 065
  23. RHINADVIL [Concomitant]
     Indication: PRODUCT USED FOR UNKNOWN INDICATION
     Route: 065

REACTIONS (5)
  - Pulmonary arterial hypertension [Not Recovered/Not Resolved]
  - Dyspnoea exertional [Not Recovered/Not Resolved]
  - Pulmonary embolism [Unknown]
  - Respiratory disorder [Unknown]
  - Diaphragmatic paralysis [Unknown]
